FAERS Safety Report 6510013-1 (Version None)
Quarter: 2009Q4

REPORT INFORMATION
  Report Type: 
  Country: None (occurrence: None)
  Receive Date: 20091222
  Receipt Date: 20090128
  Transmission Date: 20100525
  Serious: No
  Sender: FDA-Public Use
  Company Number: US-ABBOTT-09P-163-0499467-00

PATIENT
  Sex: Female

DRUGS (1)
  1. OMNICEF [Suspect]
     Indication: SINUSITIS
     Route: 048
     Dates: start: 20070211, end: 20070216

REACTIONS (9)
  - ACCIDENTAL OVERDOSE [None]
  - CONSTIPATION [None]
  - DIARRHOEA [None]
  - DYSPEPSIA [None]
  - FATIGUE [None]
  - HYPOPHAGIA [None]
  - MEDICATION ERROR [None]
  - PAIN [None]
  - VISUAL IMPAIRMENT [None]
